FAERS Safety Report 9228111 (Version 2)
Quarter: 2013Q2

REPORT INFORMATION
  Report Type: Report from Study
  Country: DE (occurrence: DE)
  Receive Date: 20130412
  Receipt Date: 20130513
  Transmission Date: 20140414
  Serious: Yes (Death, Other)
  Sender: FDA-Public Use
  Company Number: DE-ROCHE-1210378

PATIENT
  Sex: 0

DRUGS (3)
  1. ALTEPLASE [Suspect]
     Indication: PRECEREBRAL ARTERY OCCLUSION
     Dosage: DOSE : 10-20 MG/HR
     Route: 013
  2. ABCIXIMAB [Suspect]
     Indication: PRECEREBRAL ARTERY OCCLUSION
     Route: 040
  3. ABCIXIMAB [Suspect]
     Dosage: DOSE: 125 MCG/KG/MIN, MAINTAINED FOR 12 HRS
     Route: 042

REACTIONS (6)
  - Death [Fatal]
  - Therapeutic response decreased [Unknown]
  - Haemorrhagic transformation stroke [Unknown]
  - Subarachnoid haemorrhage [Unknown]
  - Intracranial haematoma [Unknown]
  - Drug effect decreased [Unknown]
